FAERS Safety Report 16953099 (Version 3)
Quarter: 2020Q1

REPORT INFORMATION
  Report Type: Spontaneous
  Country: JP (occurrence: JP)
  Receive Date: 20191023
  Receipt Date: 20200207
  Transmission Date: 20200409
  Serious: Yes (Hospitalization, Other)
  Sender: FDA-Public Use
  Company Number: JP-JNJFOC-20190914023

PATIENT
  Age: 77 Year
  Sex: Female

DRUGS (11)
  1. RIVAROXABAN [Suspect]
     Active Substance: RIVAROXABAN
     Indication: PRODUCT USED FOR UNKNOWN INDICATION
     Route: 048
  2. MINNEBRO [Concomitant]
     Dosage: DAILY DOSE 2.5 MG AFTER BREAKFAST
  3. MUCOSOLVAN [Concomitant]
     Active Substance: AMBROXOL HYDROCHLORIDE
     Dosage: 15 MG, TID, AFTER EACH MEAL
  4. LUPRAC [Concomitant]
     Active Substance: TORSEMIDE
     Dosage: DAILY DOSE 4 MG AFTER BREAKFAST
  5. TAKEPRON [Concomitant]
     Active Substance: LANSOPRAZOLE
     Dosage: DAILY DOSE 15 MG AFTER DINNER
  6. TANATRIL [Concomitant]
     Active Substance: IMIDAPRIL
     Dosage: 5 MG, BID , AFTER BREAKFAST AND DINNER
  7. FERROMIA [Concomitant]
     Active Substance: SODIUM FERROUS CITRATE
     Dosage: DAILY DOSE 50 MG, AFTER DINNER
  8. SYMMETREL [Concomitant]
     Active Substance: AMANTADINE HYDROCHLORIDE
     Dosage: 50 MG, TID, AFTER EACH MEAL
  9. NORVASC [Concomitant]
     Active Substance: AMLODIPINE BESYLATE
     Indication: BLOOD PRESSURE INCREASED
     Dosage: DAILY DOSE 5 MG AFTER BREAKFAST
  10. BROMHEXINE HYDROCHLORIDE [Concomitant]
     Active Substance: BROMHEXINE HYDROCHLORIDE
     Dosage: 4 MG, TID, AFTER EACH MEAL
  11. EXCEGRAN [Concomitant]
     Active Substance: ZONISAMIDE
     Indication: EPILEPSY
     Dosage: 100MG , BID ,AFTER BREAKFAST AND DINNER

REACTIONS (6)
  - Traumatic fracture [Unknown]
  - Cerebral infarction [Unknown]
  - Cerebral ventricular rupture [Unknown]
  - Cerebral haemorrhage [Unknown]
  - Cerebral haematoma [Unknown]
  - Fall [Unknown]

NARRATIVE: CASE EVENT DATE: 20190829
